FAERS Safety Report 10192480 (Version 1)
Quarter: 2014Q2

REPORT INFORMATION
  Report Type: Spontaneous
  Country: US (occurrence: US)
  Receive Date: 20140523
  Receipt Date: 20140523
  Transmission Date: 20141212
  Serious: Yes (Other)
  Sender: FDA-Public Use
  Company Number: US-TEVA-483379USA

PATIENT
  Age: 65 Year
  Sex: Female
  Weight: 51.76 kg

DRUGS (7)
  1. PROAIR HFA [Suspect]
     Indication: BRONCHITIS
     Route: 055
     Dates: start: 2012, end: 20140519
  2. DOXEPIN [Concomitant]
     Indication: PANIC ATTACK
  3. PRAVASTATIN [Concomitant]
     Indication: HYPERCHOLESTEROLAEMIA
  4. LISINOPRIL [Concomitant]
     Indication: HYPERTENSION
  5. CLORAZEPATE [Concomitant]
     Indication: PANIC ATTACK
  6. ALENDRONATE SODIUM [Concomitant]
     Indication: OSTEOPOROSIS
  7. PREMARIN [Concomitant]
     Indication: HORMONE LEVEL ABNORMAL

REACTIONS (4)
  - Dyspnoea [Not Recovered/Not Resolved]
  - Dyspnoea [Not Recovered/Not Resolved]
  - Rash [Not Recovered/Not Resolved]
  - Wrong technique in drug usage process [Recovered/Resolved]
